FAERS Safety Report 23753419 (Version 2)
Quarter: 2024Q3

REPORT INFORMATION
  Report Type: Spontaneous
  Country: US (occurrence: US)
  Receive Date: 20240417
  Receipt Date: 20240719
  Transmission Date: 20241017
  Serious: Yes (Hospitalization, Other)
  Sender: ELI LILLY AND CO
  Company Number: US-ELI_LILLY_AND_COMPANY-US202404004274

PATIENT
  Age: 55 Year
  Sex: Female

DRUGS (5)
  1. HUMULIN R [Suspect]
     Active Substance: INSULIN HUMAN
     Indication: Type 2 diabetes mellitus
     Dosage: 50 U, BID
     Route: 058
     Dates: start: 1989
  2. HUMULIN R [Suspect]
     Active Substance: INSULIN HUMAN
     Dosage: 50 U, BID
     Route: 058
  3. HUMULIN N [Suspect]
     Active Substance: INSULIN HUMAN
     Indication: Type 2 diabetes mellitus
     Dosage: 78 U, BID
     Route: 058
     Dates: start: 1989
  4. HUMULIN N [Suspect]
     Active Substance: INSULIN HUMAN
     Dosage: 78 U, BID
     Route: 058
  5. METFORMIN [Concomitant]
     Active Substance: METFORMIN HYDROCHLORIDE
     Indication: Type 2 diabetes mellitus
     Dosage: 1000 MG, BID

REACTIONS (8)
  - Arterial occlusive disease [Unknown]
  - Arthropathy [Unknown]
  - Road traffic accident [Unknown]
  - Ear injury [Unknown]
  - Hypoacusis [Unknown]
  - Expired product administered [Unknown]
  - Visual impairment [Unknown]
  - Glycosylated haemoglobin increased [Unknown]

NARRATIVE: CASE EVENT DATE: 20100101
